FAERS Safety Report 7018851-6 (Version None)
Quarter: 2010Q3

REPORT INFORMATION
  Report Type: 
  Country: None (occurrence: None)
  Receive Date: 20100928
  Receipt Date: 20100909
  Transmission Date: 20110219
  Serious: No
  Sender: FDA-Public Use
  Company Number: US-ROXANE LABORATORIES, INC.-2010-RO-01206RO

PATIENT
  Sex: Female

DRUGS (9)
  1. PREDNISONE [Suspect]
     Indication: SARCOIDOSIS
     Dosage: 1 MG
  2. AMLODIPINE [Suspect]
     Indication: HYPERTENSION
  3. NAPROXEN [Suspect]
     Indication: OSTEOARTHRITIS
  4. OMEPRAZOLE [Suspect]
     Dosage: 20.6 MG
     Route: 048
     Dates: start: 20100801, end: 20100801
  5. OXYCODONE [Concomitant]
     Indication: ARTHRITIS
  6. OXYCODONE [Concomitant]
     Indication: OSTEOARTHRITIS
  7. DAYPRO [Concomitant]
     Indication: ARTHRITIS
  8. DAYPRO [Concomitant]
     Indication: OSTEOARTHRITIS
  9. CARAFATE [Concomitant]
     Indication: GASTRIC DISORDER

REACTIONS (2)
  - EPISTAXIS [None]
  - GASTRIC DISORDER [None]
